FAERS Safety Report 22916561 (Version 2)
Quarter: 2024Q2

REPORT INFORMATION
  Report Type: Spontaneous
  Country: CA (occurrence: CA)
  Receive Date: 20230907
  Receipt Date: 20240516
  Transmission Date: 20240716
  Serious: Yes (Hospitalization)
  Sender: FDA-Public Use
  Company Number: None

PATIENT
  Age: 64 Year
  Sex: Male

DRUGS (18)
  1. HYDROMORPHONE HYDROCHLORIDE [Suspect]
     Active Substance: HYDROMORPHONE HYDROCHLORIDE
     Indication: Cholecystitis acute
     Dosage: 1 MILLIGRAM
     Route: 048
  2. AMOXICILLIN\CLAVULANATE POTASSIUM [Suspect]
     Active Substance: AMOXICILLIN\CLAVULANATE POTASSIUM
     Indication: Cholecystitis acute
     Dosage: UNK
     Route: 048
  3. DEPEMOKIMAB [Suspect]
     Active Substance: DEPEMOKIMAB
     Indication: Asthma
     Dosage: UNK
     Route: 065
  4. DEPEMOKIMAB [Suspect]
     Active Substance: DEPEMOKIMAB
     Indication: Product used for unknown indication
     Dosage: 100 MILLIGRAM
     Route: 058
  5. ALBUTEROL SULFATE [Suspect]
     Active Substance: ALBUTEROL SULFATE
     Indication: Asthma
     Dosage: UNK
     Route: 065
  6. ALBUTEROL SULFATE [Suspect]
     Active Substance: ALBUTEROL SULFATE
     Indication: Product used for unknown indication
  7. ADVAIR HFA [Concomitant]
     Active Substance: FLUTICASONE PROPIONATE\SALMETEROL XINAFOATE
     Indication: Asthma
     Dosage: UNK UNK, BID (2 EVERY 1 DAYS)
  8. ASPIRIN [Concomitant]
     Active Substance: ASPIRIN
     Indication: Myocardial infarction
     Dosage: 81 MILLIGRAM, DAILY (1 EVERY 1 DAYS)
     Route: 048
  9. AZELASTINE HYDROCHLORIDE AND FLUTICASONE PROPIONATE [Concomitant]
     Active Substance: AZELASTINE HYDROCHLORIDE\FLUTICASONE PROPIONATE
     Indication: Rhinitis allergic
     Dosage: UNK, BID (2 EVERY 1 DAYS)
  10. AZELASTINE HYDROCHLORIDE AND FLUTICASONE PROPIONATE [Concomitant]
     Active Substance: AZELASTINE HYDROCHLORIDE\FLUTICASONE PROPIONATE
     Dosage: UNK, (1 EVERY 12 HOURS)
  11. BRILINTA [Concomitant]
     Active Substance: TICAGRELOR
     Indication: Myocardial infarction
     Dosage: 90.0 MILLIGRAM, BID (2 EVERY 1 DAYS)
     Route: 048
  12. METHYLPREDNISOLONE SODIUM SUCCINATE [Concomitant]
     Active Substance: METHYLPREDNISOLONE SODIUM SUCCINATE
     Indication: Asthma
     Dosage: 125.0 MILLIGRAM, DAILY (1 EVERY 1 DAYS)
     Route: 042
  13. METOPROLOL [Concomitant]
     Active Substance: METOPROLOL
     Indication: Hypertension
     Dosage: 25.0 MILLIGRAM, DAILY (1 EVERY 1 DAYS)
     Route: 048
  14. MONTELUKAST [Concomitant]
     Active Substance: MONTELUKAST SODIUM
     Indication: Asthma
     Dosage: 10 MILLIGRAM, DAILY (1 EVERY 1 DAYS)
     Route: 048
  15. PERINDOPRIL [Concomitant]
     Active Substance: PERINDOPRIL
     Indication: Hypertension
     Dosage: 2 MILLIGRAM, DAILY (1 EVERY 1 DAYS)
     Route: 048
  16. ROSUVASTATIN [Concomitant]
     Active Substance: ROSUVASTATIN
     Indication: Blood cholesterol increased
     Dosage: 40 MILLIGRAM, DAILY (1 EVERY 1 DAYS)
     Route: 048
  17. THEOPHYLLINE [Concomitant]
     Active Substance: THEOPHYLLINE
     Indication: Asthma
     Dosage: 200 MILLIGRAM, DAILY (1 EVERY 1 DAYS)
     Route: 048
  18. ACLIDINIUM BROMIDE [Concomitant]
     Active Substance: ACLIDINIUM BROMIDE
     Indication: Asthma
     Dosage: 400 MICROGRAM, 1 EVERY 12 HOURS
     Route: 055

REACTIONS (1)
  - Chest pain [Recovered/Resolved]
